FAERS Safety Report 25589567 (Version 2)
Quarter: 2025Q4

REPORT INFORMATION
  Report Type: Report from Study
  Country: CA (occurrence: CA)
  Receive Date: 20250722
  Receipt Date: 20251012
  Transmission Date: 20260118
  Serious: Yes (Other)
  Sender: JAZZ
  Company Number: CA-JAZZ PHARMACEUTICALS-2025-CA-017808

PATIENT
  Sex: Male

DRUGS (7)
  1. EPIDIOLEX [Suspect]
     Active Substance: CANNABIDIOL
     Indication: Tuberous sclerosis complex
     Dosage: 2.9 MILLILITER, BID
  2. LAMOTRIGINE [Concomitant]
     Active Substance: LAMOTRIGINE
     Indication: Tuberous sclerosis complex
  3. VALPROIC ACID [Concomitant]
     Active Substance: VALPROIC ACID
     Indication: Tuberous sclerosis complex
  4. CLOBAZAM [Concomitant]
     Active Substance: CLOBAZAM
     Indication: Tuberous sclerosis complex
  5. TOPIRAMATE [Concomitant]
     Active Substance: TOPIRAMATE
     Indication: Tuberous sclerosis complex
  6. FYCOMPA [Concomitant]
     Active Substance: PERAMPANEL
     Indication: Tuberous sclerosis complex
  7. LACOSAMIDE [Concomitant]
     Active Substance: LACOSAMIDE
     Indication: Tuberous sclerosis complex

REACTIONS (1)
  - Seizure [Unknown]
